FAERS Safety Report 8075004-0 (Version None)
Quarter: 2012Q1

REPORT INFORMATION
  Report Type: 
  Country: None (occurrence: None)
  Receive Date: 20120127
  Receipt Date: 20120120
  Transmission Date: 20120608
  Serious: Yes (Hospitalization)
  Sender: FDA-Public Use
  Company Number: US-BIOGENIDEC-2011BI046910

PATIENT
  Age: 49 Year
  Sex: Female

DRUGS (6)
  1. TYSABRI [Suspect]
     Route: 042
     Dates: start: 20111214
  2. FOSAMAX [Concomitant]
     Indication: OSTEOPOROSIS PROPHYLAXIS
  3. ANTIDEPRESSANT (NOS) [Concomitant]
     Indication: PROPHYLAXIS
  4. TYSABRI [Suspect]
     Indication: MULTIPLE SCLEROSIS
     Route: 042
     Dates: start: 20080204, end: 20110504
  5. SEROQUEL [Concomitant]
     Indication: TENSION
  6. LEXAPRO [Concomitant]
     Indication: PROPHYLAXIS

REACTIONS (16)
  - NUCLEAR MAGNETIC RESONANCE IMAGING BRAIN ABNORMAL [None]
  - PSYCHOTIC DISORDER [None]
  - SYNCOPE [None]
  - ABDOMINAL DISTENSION [None]
  - CENTRAL NERVOUS SYSTEM LESION [None]
  - TREMOR [None]
  - VISUAL IMPAIRMENT [None]
  - DYSPHAGIA [None]
  - MENOPAUSE [None]
  - BLOOD IRON DECREASED [None]
  - CONFUSIONAL STATE [None]
  - AFFECT LABILITY [None]
  - INSOMNIA [None]
  - MULTIPLE SCLEROSIS RELAPSE [None]
  - GAIT DISTURBANCE [None]
  - MENSTRUATION IRREGULAR [None]
